FAERS Safety Report 7102532-4 (Version None)
Quarter: 2010Q4

REPORT INFORMATION
  Report Type: 
  Country: None (occurrence: None)
  Receive Date: 20101115
  Receipt Date: 20101103
  Transmission Date: 20110411
  Serious: No
  Sender: FDA-Public Use
  Company Number: US-JNJFOC-20101101780

PATIENT
  Age: 72 Year
  Sex: Female

DRUGS (1)
  1. DURAGESIC-100 [Suspect]
     Indication: SPINAL COLUMN STENOSIS
     Route: 062

REACTIONS (3)
  - DRUG ADMINISTRATION ERROR [None]
  - MALAISE [None]
  - THERAPEUTIC RESPONSE DELAYED [None]
